FAERS Safety Report 8465905-3 (Version None)
Quarter: 2012Q2

REPORT INFORMATION
  Report Type: 
  Country: None (occurrence: None)
  Receive Date: 20120626
  Receipt Date: 20120614
  Transmission Date: 20120825
  Serious: Yes (Hospitalization, Other)
  Sender: FDA-Public Use
  Company Number: ES-ELI_LILLY_AND_COMPANY-ES201206004986

PATIENT
  Sex: Female
  Weight: 61.6 kg

DRUGS (14)
  1. GEMCITABINE HYDROCHLORIDE [Suspect]
     Indication: PANCREATIC CARCINOMA METASTATIC
     Dosage: 1000 MG/M2, UNK
     Route: 042
     Dates: start: 20120329
  2. OMEPRAZOLE [Concomitant]
     Indication: PROPHYLAXIS
     Dosage: UNK
     Route: 048
     Dates: start: 20120307
  3. LACTULOSE [Concomitant]
     Indication: CONSTIPATION
     Dosage: UNK
     Route: 048
     Dates: start: 20120307
  4. LYRICA [Concomitant]
     Indication: ABDOMINAL PAIN
     Dosage: UNK
     Route: 048
     Dates: start: 20120307
  5. ENOXAPARIN SODIUM [Concomitant]
     Indication: PROPHYLAXIS
     Dosage: UNK
     Route: 058
     Dates: start: 20120513, end: 20120513
  6. PACLITAXEL [Suspect]
     Dosage: 100 MG/M2, UNK
     Route: 042
     Dates: start: 20120524
  7. ENOXAPARIN SODIUM [Concomitant]
     Dosage: 40 MG, QD
     Route: 058
     Dates: start: 20120514
  8. PACLITAXEL [Suspect]
     Indication: PANCREATIC CARCINOMA METASTATIC
     Dosage: 125 MG/M2, UNK
     Route: 042
     Dates: start: 20120329
  9. PLANTABEN [Concomitant]
     Indication: CONSTIPATION
     Dosage: UNK
     Route: 048
     Dates: start: 20120307
  10. LORAZEPAM [Concomitant]
     Indication: PROPHYLAXIS
     Dosage: UNK
     Route: 048
     Dates: start: 20120307
  11. MORPHINE SULFATE [Concomitant]
     Indication: ABDOMINAL PAIN
     Dosage: UNK
     Route: 048
     Dates: start: 20120201
  12. ACETAMINOPHEN [Concomitant]
     Indication: ABDOMINAL PAIN
     Dosage: UNK
     Route: 048
     Dates: start: 20120307
  13. PAROXETINE HCL [Concomitant]
     Indication: PROPHYLAXIS
     Dosage: UNK
     Route: 048
     Dates: start: 20120307
  14. PRIMPERAN TAB [Concomitant]
     Indication: NAUSEA
     Dosage: UNK
     Route: 048
     Dates: start: 20120307

REACTIONS (3)
  - CELLULITIS [None]
  - NEUTROPENIA [None]
  - THROMBOCYTOPENIA [None]
